FAERS Safety Report 12492429 (Version 1)
Quarter: 2016Q2

REPORT INFORMATION
  Report Type: Spontaneous
  Country: DK (occurrence: DK)
  Receive Date: 20160623
  Receipt Date: 20160623
  Transmission Date: 20160815
  Serious: Yes (Disabling)
  Sender: FDA-Public Use
  Company Number: DK-PFIZER INC-2015007765

PATIENT
  Age: 37 Year
  Sex: Female
  Weight: 85 kg

DRUGS (23)
  1. PANTOPRAZOLE [Concomitant]
     Active Substance: PANTOPRAZOLE SODIUM
     Indication: PROPHYLAXIS AGAINST GASTROINTESTINAL ULCER
     Dosage: 40 MG, 1X/DAY
     Route: 048
  2. CALCIUM [Concomitant]
     Active Substance: CALCIUM
     Indication: OSTEOPOROSIS PROPHYLAXIS
     Dosage: 400 MG, 2X/DAY
  3. PEG/L-ASPARAGINASE [Concomitant]
     Active Substance: PEGASPARGASE
     Indication: NON-HODGKIN^S LYMPHOMA
     Dosage: UNK 1000 IE/M2 (1898)
     Route: 030
     Dates: start: 20130816, end: 20140131
  4. ONDANSETRON [Concomitant]
     Active Substance: ONDANSETRON
     Dosage: UNK
     Route: 048
  5. SOLU-MEDROL [Concomitant]
     Active Substance: METHYLPREDNISOLONE SODIUM SUCCINATE
     Indication: NON-HODGKIN^S LYMPHOMA
     Dosage: 16 MG, UNK
     Dates: start: 20130722, end: 20140131
  6. MAXIDEX [Concomitant]
     Active Substance: DEXAMETHASONE
     Dosage: 1 DF, 4X/DAY
     Route: 047
     Dates: start: 20130917, end: 20131015
  7. MEDROXYPROGESTERONE ACETATE. [Concomitant]
     Active Substance: MEDROXYPROGESTERONE ACETATE
     Indication: ARTIFICIAL MENOPAUSE
     Dosage: 10 MG, 1X/DAY
     Route: 048
  8. ALLOPURINOL. [Concomitant]
     Active Substance: ALLOPURINOL
     Dosage: 300 MG, UNK
     Route: 048
     Dates: start: 20130719
  9. METHOTREXATE (METHOTREXATE SODIUM) [Suspect]
     Active Substance: METHOTREXATE SODIUM
     Indication: NON-HODGKIN^S LYMPHOMA
     Dosage: 12 MG, UNK
     Dates: start: 20130722, end: 20140131
  10. VITAMIN D /00107901/ [Concomitant]
     Active Substance: ERGOCALCIFEROL
     Indication: OSTEOPOROSIS PROPHYLAXIS
     Dosage: 5 UG, 2X/DAY
  11. TINZAPARIN [Concomitant]
     Active Substance: TINZAPARIN
     Dosage: 4500 DF, 1X/DAY
     Route: 058
  12. DEXAMETHASON /00016001/ [Concomitant]
     Active Substance: DEXAMETHASONE
     Indication: NON-HODGKIN^S LYMPHOMA
     Dosage: 10 MG/M2, 1X/DAY (ALTERNATE 20 MG/M2 DAILY)
     Route: 048
     Dates: start: 20130719, end: 20130915
  13. DOXORUBICIN [Concomitant]
     Active Substance: DOXORUBICIN
     Indication: NON-HODGKIN^S LYMPHOMA
     Dosage: 72 MG, UNK (40 MG/M2 OVER 4 HOUR)
     Route: 042
     Dates: start: 20130719, end: 20130809
  14. IDARUBICIN [Concomitant]
     Active Substance: IDARUBICIN
     Indication: NON-HODGKIN^S LYMPHOMA
     Dosage: 8 MG/M2 GIVEN OVER 1 HOUR (14.8 MG)
     Route: 042
     Dates: start: 20131009, end: 20131009
  15. CYTARABINE. [Suspect]
     Active Substance: CYTARABINE
     Indication: NON-HODGKIN^S LYMPHOMA
     Dosage: UNK
     Route: 042
     Dates: start: 20130722, end: 20140131
  16. SENDOXAN [Concomitant]
     Active Substance: CYCLOPHOSPHAMIDE
     Indication: NON-HODGKIN^S LYMPHOMA
     Dosage: 440 MG/M2 OVER 60 MIN (832 MG)
     Route: 042
     Dates: start: 20130823, end: 20131123
  17. LORAZEPAM. [Concomitant]
     Active Substance: LORAZEPAM
     Dosage: 1 MG, UNK
     Route: 048
  18. FLUDARABINE [Concomitant]
     Active Substance: FLUDARABINE PHOSPHATE
     Indication: NON-HODGKIN^S LYMPHOMA
     Dosage: UNK
     Route: 042
     Dates: start: 20131008, end: 20131012
  19. PRIMPERAN [Concomitant]
     Active Substance: METOCLOPRAMIDE HYDROCHLORIDE
     Dosage: UNK
     Route: 048
  20. PURINETHOL [Concomitant]
     Active Substance: MERCAPTOPURINE
     Indication: NON-HODGKIN^S LYMPHOMA
     Dosage: 100 MG/M2, UNK
     Route: 048
     Dates: start: 20130817, end: 20130915
  21. ETOPOSIDE. [Concomitant]
     Active Substance: ETOPOSIDE
     Indication: NON-HODGKIN^S LYMPHOMA
     Dosage: 100 MG/M2 OVER 60 MIN (189 MG)
     Route: 042
     Dates: start: 20130823, end: 20131123
  22. ONCOVIN [Concomitant]
     Active Substance: VINCRISTINE SULFATE
     Indication: NON-HODGKIN^S LYMPHOMA
     Dosage: UNK
     Route: 042
     Dates: start: 20130719, end: 20130913
  23. NEUPOGEN [Concomitant]
     Active Substance: FILGRASTIM
     Dosage: 5 UG/KG, UNK
     Route: 058
     Dates: start: 20130829

REACTIONS (7)
  - Paraparesis [Not Recovered/Not Resolved]
  - Paraplegia [Not Recovered/Not Resolved]
  - Urinary retention [Not Recovered/Not Resolved]
  - Anal incontinence [Not Recovered/Not Resolved]
  - Muscular weakness [Not Recovered/Not Resolved]
  - Sensory disturbance [Not Recovered/Not Resolved]
  - Bone marrow failure [Recovered/Resolved]

NARRATIVE: CASE EVENT DATE: 20140205
